FAERS Safety Report 6020559-0 (Version None)
Quarter: 2008Q4

REPORT INFORMATION
  Report Type: 
  Country: None (occurrence: None)
  Receive Date: 20081226
  Receipt Date: 20081218
  Transmission Date: 20090506
  Serious: Yes (Other)
  Sender: FDA-Public Use
  Company Number: JP-ABBOTT-08P-087-0482624-00

PATIENT
  Sex: Male

DRUGS (6)
  1. CEFZON [Suspect]
     Indication: TONSILLITIS
     Route: 048
     Dates: start: 20081003, end: 20081007
  2. CEFZON [Suspect]
     Route: 048
     Dates: start: 20080919, end: 20080926
  3. CALONAL [Suspect]
     Indication: TONSILLITIS
     Route: 048
     Dates: start: 20081003, end: 20081007
  4. CALONAL [Suspect]
     Route: 048
     Dates: start: 20080919, end: 20080926
  5. HUSCODE [Concomitant]
     Indication: TONSILLITIS
     Dates: start: 20080919, end: 20081007
  6. AMLODIN [Concomitant]
     Indication: DRUG USE FOR UNKNOWN INDICATION
     Dosage: ORODISPERSABLE CR TABLET
     Dates: start: 20001101

REACTIONS (6)
  - BUCCAL MUCOSAL ROUGHENING [None]
  - DRUG ERUPTION [None]
  - PAIN [None]
  - PRURITUS [None]
  - PYREXIA [None]
  - RHINORRHOEA [None]
